FAERS Safety Report 9698724 (Version 2)
Quarter: 2013Q4

REPORT INFORMATION
  Report Type: Report from Study
  Country: US (occurrence: US)
  Receive Date: 20131120
  Receipt Date: 20131120
  Transmission Date: 20140711
  Serious: Yes (Hospitalization)
  Sender: FDA-Public Use
  Company Number: US-US-EMD SERONO, INC.-7242978

PATIENT
  Age: 40 Year
  Sex: Female

DRUGS (3)
  1. REBIF [Suspect]
     Indication: MULTIPLE SCLEROSIS
     Route: 058
     Dates: start: 20130613
  2. INSULIN [Concomitant]
     Indication: TYPE 1 DIABETES MELLITUS
     Dates: start: 2007
  3. CALCIUM [Concomitant]
     Indication: DYSPEPSIA

REACTIONS (7)
  - Hemiparesis [Recovered/Resolved]
  - Muscular weakness [Recovered/Resolved]
  - Headache [Recovered/Resolved]
  - Epistaxis [Not Recovered/Not Resolved]
  - Hypersensitivity [Not Recovered/Not Resolved]
  - Fatigue [Not Recovered/Not Resolved]
  - Injection site pain [Recovering/Resolving]
